FAERS Safety Report 5636993-4 (Version None)
Quarter: 2008Q1

REPORT INFORMATION
  Report Type: 
  Country: None (occurrence: None)
  Receive Date: 20080225
  Receipt Date: 20060902
  Transmission Date: 20080703
  Serious: No
  Sender: FDA-Public Use
  Company Number: US-BRISTOL-MYERS SQUIBB COMPANY-13743018

PATIENT
  Age: 52 Year
  Sex: Female

DRUGS (5)
  1. METFORMIN HCL [Suspect]
     Indication: TYPE 2 DIABETES MELLITUS
     Route: 048
     Dates: start: 20060803, end: 20060812
  2. PRILOSEC [Concomitant]
  3. LEVOTHYROXINE SODIUM [Concomitant]
  4. AMBIEN [Concomitant]
  5. ZOLOFT [Concomitant]

REACTIONS (5)
  - DIARRHOEA [None]
  - DYSGEUSIA [None]
  - HYPERHIDROSIS [None]
  - INSOMNIA [None]
  - NAUSEA [None]
